FAERS Safety Report 14022299 (Version 1)
Quarter: 2017Q3

REPORT INFORMATION
  Report Type: Spontaneous
  Country: US (occurrence: US)
  Receive Date: 20170928
  Receipt Date: 20170928
  Transmission Date: 20171128
  Serious: No
  Sender: FDA-Public Use
  Company Number: US-DRREDDYS-USA/USA/17/0088233

PATIENT
  Sex: Female
  Weight: 66.3 kg

DRUGS (4)
  1. AMOXICILLIN. [Suspect]
     Active Substance: AMOXICILLIN
     Indication: OROPHARYNGEAL PAIN
     Route: 048
     Dates: start: 20170221, end: 20170228
  2. DEXAMETHASONE. [Concomitant]
     Active Substance: DEXAMETHASONE
     Indication: OROPHARYNGEAL PAIN
     Dosage: 5 ML EVERY HOURS PRN
     Route: 065
     Dates: start: 20170221
  3. VALTREX [Concomitant]
     Active Substance: VALACYCLOVIR HYDROCHLORIDE
     Indication: OROPHARYNGEAL PAIN
     Route: 048
     Dates: start: 20170228
  4. LIDOCAINE/NYSTATIN [Concomitant]
     Indication: OROPHARYNGEAL PAIN
     Dosage: 5 ML EVERY HOURS PRN
     Route: 065
     Dates: start: 20170221

REACTIONS (3)
  - Platelet count decreased [Unknown]
  - Drug ineffective [Unknown]
  - Product quality issue [Unknown]
